FAERS Safety Report 9939279 (Version 1)
Quarter: 2014Q1

REPORT INFORMATION
  Report Type: Report from Study
  Country: US (occurrence: US)
  Receive Date: 20140303
  Receipt Date: 20140303
  Transmission Date: 20141002
  Serious: No
  Sender: FDA-Public Use
  Company Number: US-ABBVIE-13P-163-1032428-00

PATIENT
  Age: 55 Year
  Sex: Female
  Weight: 81.72 kg

DRUGS (6)
  1. HUMIRA [Suspect]
     Indication: PSORIASIS
     Dates: start: 2008, end: 2012
  2. ALEVE [Concomitant]
     Indication: PAIN
  3. UNKNOWN OTC SLEEP MEDICATION [Concomitant]
     Indication: INSOMNIA
  4. CALTRATE [Concomitant]
     Indication: PROPHYLAXIS
  5. CLARITIN [Concomitant]
     Indication: SINUS DISORDER
  6. STOOL SOFTENER [Concomitant]
     Indication: ILL-DEFINED DISORDER

REACTIONS (1)
  - Psoriasis [Not Recovered/Not Resolved]
